FAERS Safety Report 18535066 (Version 3)
Quarter: 2021Q2

REPORT INFORMATION
  Report Type: Spontaneous
  Country: JP (occurrence: JP)
  Receive Date: 20201123
  Receipt Date: 20210601
  Transmission Date: 20210717
  Serious: Yes (Other)
  Sender: FDA-Public Use
  Company Number: JP-BAYER-2020-249206

PATIENT
  Age: 49 Year
  Sex: Female

DRUGS (5)
  1. MIRENA [Suspect]
     Active Substance: LEVONORGESTREL
     Indication: HEAVY MENSTRUAL BLEEDING
     Dosage: 20 ?G PER DAY, CONTINUOUSLY
     Route: 015
     Dates: start: 20201113, end: 20210217
  2. MONTELUKAST [Concomitant]
     Active Substance: MONTELUKAST SODIUM
     Indication: GLAUCOMA
     Dosage: UNK
  3. METHYCOBAL [Concomitant]
     Active Substance: METHYLCOBALAMIN
     Indication: GLAUCOMA
     Dosage: UNK
  4. MIRENA [Suspect]
     Active Substance: LEVONORGESTREL
     Indication: HEAVY MENSTRUAL BLEEDING
     Dosage: 20 ?G PER DAY, CONTINUOUSLY
     Route: 015
     Dates: start: 20200721, end: 20200818
  5. OLOPATADINE. [Concomitant]
     Active Substance: OLOPATADINE
     Indication: GLAUCOMA
     Dosage: UNK

REACTIONS (5)
  - Glaucoma [Unknown]
  - Device expulsion [None]
  - Intraocular pressure increased [Unknown]
  - Device expulsion [None]
  - Visual impairment [Unknown]

NARRATIVE: CASE EVENT DATE: 20200818
